FAERS Safety Report 21324551 (Version 1)
Quarter: 2022Q3

REPORT INFORMATION
  Report Type: Spontaneous
  Country: US (occurrence: US)
  Receive Date: 20220912
  Receipt Date: 20220912
  Transmission Date: 20221027
  Serious: No
  Sender: FDA-Public Use
  Company Number: US-JOURNEY MEDICAL CORPORATION-2022JNY00706

PATIENT
  Sex: Male

DRUGS (1)
  1. ZILXI [Suspect]
     Active Substance: MINOCYCLINE HYDROCHLORIDE
     Dosage: UNK
     Route: 061

REACTIONS (1)
  - Hot flush [Unknown]
